FAERS Safety Report 15984140 (Version 1)
Quarter: 2019Q1

REPORT INFORMATION
  Report Type: Spontaneous
  Country: JP (occurrence: JP)
  Receive Date: 20190219
  Receipt Date: 20190219
  Transmission Date: 20190418
  Serious: Yes (Other)
  Sender: FDA-Public Use
  Company Number: JP-SUN PHARMACEUTICAL INDUSTRIES LTD-2019RR-199537

PATIENT
  Age: 65 Year
  Sex: Male

DRUGS (12)
  1. CALCIUM FOLINAT [Suspect]
     Active Substance: LEUCOVORIN CALCIUM
     Dosage: 200 MILLIGRAM/SQ. METER, 3 CYCLES, AS MFOLFOX6 REGIMEN
     Route: 065
  2. TEGAFUR/URACIL [Suspect]
     Active Substance: TEGAFUR\URACIL
     Indication: COLON CANCER
     Dosage: AS POSTOPERATIVE ADJUVANT THERAPY
     Route: 065
  3. FLUOROURACIL. [Suspect]
     Active Substance: FLUOROURACIL
     Dosage: 400 MILLIGRAM/SQ. METER, AS FOLFIRI REGIMEN
     Route: 040
  4. BEVACIZUMAB. [Suspect]
     Active Substance: BEVACIZUMAB
     Indication: COLON CANCER
     Dosage: 5 MILLIGRAM/KILOGRAM, EVERY 2 WEEKS
     Route: 065
  5. FLUOROURACIL. [Suspect]
     Active Substance: FLUOROURACIL
     Indication: COLON CANCER
     Dosage: 400 MILLIGRAM/SQ. METER, 3 CYCLES, AS MFOLFOX6 REGIMEN
     Route: 040
  6. OXALIPLATIN. [Suspect]
     Active Substance: OXALIPLATIN
     Indication: COLON CANCER
     Dosage: 85 MILLIGRAM/SQ. METER, 3 CYCLES, AS MFOLFOX6 REGIMEN
     Route: 065
  7. FLUOROURACIL. [Suspect]
     Active Substance: FLUOROURACIL
     Dosage: 2400 MILLIGRAM/SQ. METER, 46 HOURS,3 CYCLES, AS MFOLFOX6 REGIMEN
     Route: 065
  8. IRINOTECAN [Suspect]
     Active Substance: IRINOTECAN
     Indication: COLON CANCER
     Dosage: 150 MILLIGRAM/SQ. METER, AS FOLFIRI REGIMEN
     Route: 065
  9. AFLIBERCEPT [Suspect]
     Active Substance: AFLIBERCEPT
     Indication: COLON CANCER
     Dosage: 4 MILLIGRAM/KILOGRAM
     Route: 065
  10. CALCIUM FOLINAT [Suspect]
     Active Substance: LEUCOVORIN CALCIUM
     Indication: COLON CANCER
     Dosage: AS POSTOPERATIVE ADJUVANT THERAPY
     Route: 065
  11. CALCIUM FOLINAT [Suspect]
     Active Substance: LEUCOVORIN CALCIUM
     Dosage: 200 MILLIGRAM/SQ. METER, AS FOLFIRI REGIMEN
     Route: 065
  12. FLUOROURACIL. [Suspect]
     Active Substance: FLUOROURACIL
     Dosage: 2500 MILLIGRAM/SQ. METER, 46 HOURS, AS FOLFIRI REGIMEN
     Route: 065

REACTIONS (6)
  - Neutropenia [Unknown]
  - Metastases to peritoneum [Recovering/Resolving]
  - Therapy partial responder [Unknown]
  - Disease progression [Unknown]
  - Metastases to liver [Recovered/Resolved]
  - Metastases to lymph nodes [Recovered/Resolved]
